FAERS Safety Report 5528126-X (Version None)
Quarter: 2007Q4

REPORT INFORMATION
  Report Type: 
  Country: None (occurrence: None)
  Receive Date: 20071123
  Receipt Date: 20071113
  Transmission Date: 20080405
  Serious: Yes (Other)
  Sender: FDA-Public Use
  Company Number: 144-20785-07101143

PATIENT
  Age: 44 Year
  Sex: Female

DRUGS (6)
  1. THALIDOMIDE [Suspect]
     Indication: MULTIPLE MYELOMA
     Dosage: 600 MG, 12 IN 1 D, ORAL ; 400 MG, 8 IN 1 D, ORAL
     Route: 048
     Dates: start: 20070905, end: 20070925
  2. THALIDOMIDE [Suspect]
     Indication: MULTIPLE MYELOMA
     Dosage: 600 MG, 12 IN 1 D, ORAL ; 400 MG, 8 IN 1 D, ORAL
     Route: 048
     Dates: start: 20070925, end: 20070929
  3. DEXAMETHASONE TAB [Concomitant]
  4. OMEPRAZOLE [Concomitant]
  5. ASPIRIN [Concomitant]
  6. ACYCLOVIR [Concomitant]

REACTIONS (6)
  - ALANINE AMINOTRANSFERASE INCREASED [None]
  - ASPARTATE AMINOTRANSFERASE INCREASED [None]
  - BLOOD ALKALINE PHOSPHATASE INCREASED [None]
  - GAMMA-GLUTAMYLTRANSFERASE INCREASED [None]
  - HYPERBILIRUBINAEMIA [None]
  - JAUNDICE [None]
